FAERS Safety Report 4818465-X (Version None)
Quarter: 2005Q4

REPORT INFORMATION
  Report Type: 
  Country: None (occurrence: None)
  Receive Date: 20051031
  Receipt Date: 20051031
  Transmission Date: 20060501
  Serious: Yes (Hospitalization)
  Sender: FDA-Public Use
  Company Number: None

PATIENT
  Sex: Male

DRUGS (2)
  1. ACETAMINOPHEN 500 MG /HYDROCODONE 5 MG TABLET [Suspect]
     Indication: HEADACHE
     Dosage: 2 TABLETS PO Q 6 HR PRN PM
     Route: 048
     Dates: start: 20041201, end: 20050801
  2. ACETAMINOPHEN 500 MG /HYDROCODONE 5 MG TABLET [Suspect]
     Indication: PAIN
     Dosage: 2 TABLETS PO Q 6 HR PRN PM
     Route: 048
     Dates: start: 20041201, end: 20050801

REACTIONS (2)
  - CONSTIPATION [None]
  - ILEUS [None]
